FAERS Safety Report 8086262-0 (Version None)
Quarter: 2012Q1

REPORT INFORMATION
  Report Type: 
  Country: None (occurrence: None)
  Receive Date: 20120128
  Receipt Date: 20110428
  Transmission Date: 20120608
  Serious: No
  Sender: FDA-Public Use
  Company Number: US-ABBOTT-11P-163-0722315-00

PATIENT
  Age: 64 Year
  Sex: Female

DRUGS (1)
  1. HUMIRA [Suspect]
     Indication: RHEUMATOID ARTHRITIS
     Dates: start: 20070101, end: 20110419

REACTIONS (5)
  - PYREXIA [None]
  - UPPER RESPIRATORY TRACT INFECTION [None]
  - SPUTUM DISCOLOURED [None]
  - COUGH [None]
  - FAECES DISCOLOURED [None]
